FAERS Safety Report 8434805-7 (Version None)
Quarter: 2012Q2

REPORT INFORMATION
  Report Type: 
  Country: None (occurrence: None)
  Receive Date: 20120614
  Receipt Date: 20120604
  Transmission Date: 20120825
  Serious: Yes (Hospitalization)
  Sender: FDA-Public Use
  Company Number: JP-JNJFOC-20120603864

PATIENT
  Sex: Male

DRUGS (7)
  1. USTEKINUMAB [Suspect]
     Route: 058
     Dates: start: 20111013
  2. USTEKINUMAB [Suspect]
     Indication: PSORIASIS
     Route: 058
     Dates: start: 20120329
  3. USTEKINUMAB [Suspect]
     Route: 058
     Dates: start: 20110915
  4. DIFLUPREDNATE [Concomitant]
     Route: 061
  5. CALCITRIOL [Concomitant]
     Route: 061
  6. USTEKINUMAB [Suspect]
     Route: 058
     Dates: start: 20120105
  7. ISONIAZID [Concomitant]
     Indication: PROPHYLAXIS
     Route: 048

REACTIONS (1)
  - LUNG NEOPLASM MALIGNANT [None]
